FAERS Safety Report 6885088-0 (Version None)
Quarter: 2010Q3

REPORT INFORMATION
  Report Type: 
  Country: None (occurrence: None)
  Receive Date: 20100729
  Receipt Date: 20071116
  Transmission Date: 20110219
  Serious: No
  Sender: FDA-Public Use
  Company Number: US-PFIZER INC-2007098555

PATIENT
  Sex: Female

DRUGS (14)
  1. CELEBREX [Suspect]
     Indication: ARTHRITIS
     Dates: end: 20070701
  2. ADALIMUMAB [Suspect]
     Indication: PSORIATIC ARTHROPATHY
     Dosage: 40 MG, 1 IN - 2
     Route: 058
     Dates: start: 20050101, end: 20070701
  3. PREDNISONE [Concomitant]
     Indication: PAIN
  4. PREDNISONE [Concomitant]
     Indication: PSORIASIS
  5. PIOGLITAZONE [Concomitant]
     Indication: DIABETES MELLITUS
  6. VERAPAMIL [Concomitant]
     Indication: HYPERTENSION
  7. INFLIXIMAB [Concomitant]
     Indication: ARTHRITIS
     Dates: start: 20070917
  8. ASCORBIC ACID [Concomitant]
  9. CALCIUM WITH VITAMIN D [Concomitant]
  10. METHOTREXATE [Concomitant]
  11. TRIOBE [Concomitant]
     Indication: VITAMIN SUPPLEMENTATION
  12. EZETIMIBE [Concomitant]
     Indication: BLOOD CHOLESTEROL
  13. NICOTINIC ACID [Concomitant]
  14. FISH OIL [Concomitant]

REACTIONS (2)
  - DRUG INEFFECTIVE [None]
  - RASH [None]
